FAERS Safety Report 11928208 (Version 1)
Quarter: 2016Q1

REPORT INFORMATION
  Report Type: Spontaneous
  Country: CH (occurrence: CH)
  Receive Date: 20160119
  Receipt Date: 20160119
  Transmission Date: 20160526
  Serious: Yes (Life-Threatening)
  Sender: FDA-Public Use
  Company Number: CH-LPDUSPRD-20160034

PATIENT
  Age: 26 Year
  Sex: Female

DRUGS (2)
  1. VITAMIN D3 STREULI [Concomitant]
     Dosage: 3 AMPOULES/WEEK
     Route: 048
  2. FERINJECT [Suspect]
     Active Substance: FERRIC CARBOXYMALTOSE
     Dosage: 500MG/100ML NACL
     Route: 042
     Dates: start: 20151207, end: 20151207

REACTIONS (5)
  - Pruritus [Unknown]
  - Injection site pruritus [Unknown]
  - Infusion site urticaria [Unknown]
  - Erythema [Unknown]
  - Urticaria [Unknown]

NARRATIVE: CASE EVENT DATE: 20151207
